FAERS Safety Report 12129802 (Version 1)
Quarter: 2016Q1

REPORT INFORMATION
  Report Type: Spontaneous
  Country: US (occurrence: None)
  Receive Date: 20160229
  Receipt Date: 20160229
  Transmission Date: 20160526
  Serious: Yes (Other)
  Sender: FDA-Public Use
  Company Number: None

PATIENT
  Age: 59 Year
  Sex: Male

DRUGS (1)
  1. HUMIRA [Suspect]
     Active Substance: ADALIMUMAB
     Indication: RHEUMATOID ARTHRITIS
     Dosage: INJECTABLE?EVERY 2 WEEKS
     Route: 058
     Dates: start: 20160210

REACTIONS (1)
  - Sinusitis [None]

NARRATIVE: CASE EVENT DATE: 20160225
